FAERS Safety Report 6668390-7 (Version None)
Quarter: 2010Q2

REPORT INFORMATION
  Report Type: 
  Country: None (occurrence: None)
  Receive Date: 20100406
  Receipt Date: 20100323
  Transmission Date: 20101027
  Serious: Yes (Other)
  Sender: FDA-Public Use
  Company Number: PHHY2010CA19095

PATIENT
  Sex: Female

DRUGS (2)
  1. SANDOSTATIN LAR [Suspect]
     Indication: GASTROINTESTINAL HAEMORRHAGE
     Dosage: 20 MG, QMO
     Route: 030
     Dates: start: 20090727, end: 20100101
  2. SANDOSTATIN [Suspect]
     Dosage: UNK
     Route: 058

REACTIONS (4)
  - AORTIC VALVE REPLACEMENT [None]
  - CARDIAC ARREST [None]
  - CARDIAC PACEMAKER INSERTION [None]
  - CHEST PAIN [None]
